FAERS Safety Report 6990376-3 (Version None)
Quarter: 2010Q3

REPORT INFORMATION
  Report Type: 
  Country: None (occurrence: None)
  Receive Date: 20100916
  Receipt Date: 20100621
  Transmission Date: 20110219
  Serious: Yes (Death)
  Sender: FDA-Public Use
  Company Number: US-PFIZER INC-2010031751

PATIENT
  Sex: Female
  Weight: 114.74 kg

DRUGS (9)
  1. MORPHINE SULFATE [Suspect]
     Indication: PAIN
     Dosage: 60 MG, DAILY
     Route: 048
     Dates: start: 20100216, end: 20100226
  2. METHADONE [Suspect]
  3. TRAZODONE [Suspect]
  4. DOXYLAMINE [Suspect]
  5. DIPHENHYDRAMINE [Suspect]
  6. ZOLPIDEM [Suspect]
  7. ATROPINE [Suspect]
  8. HYOSCYAMINE [Suspect]
  9. LYRICA [Concomitant]
     Indication: FIBROMYALGIA
     Dosage: UNK
     Dates: start: 20080101

REACTIONS (2)
  - HYPERTENSIVE HEART DISEASE [None]
  - OBESITY [None]
